FAERS Safety Report 9039946 (Version 1)
Quarter: 2013Q1

REPORT INFORMATION
  Report Type: Spontaneous
  Country: US (occurrence: US)
  Receive Date: 20130130
  Receipt Date: 20130130
  Transmission Date: 20140127
  Serious: Yes (Hospitalization, Other)
  Sender: FDA-Public Use
  Company Number: US-009507513-1301USA012417

PATIENT
  Sex: Female

DRUGS (1)
  1. INVANZ [Suspect]
     Indication: PATHOGEN RESISTANCE
     Dosage: 1 G, QD
     Route: 042
     Dates: start: 20130120, end: 20130124

REACTIONS (1)
  - Convulsion [Recovering/Resolving]
